FAERS Safety Report 18929468 (Version 1)
Quarter: 2021Q1

REPORT INFORMATION
  Report Type: Spontaneous
  Country: IL (occurrence: IL)
  Receive Date: 20210223
  Receipt Date: 20210223
  Transmission Date: 20210420
  Serious: Yes (Hospitalization)
  Sender: FDA-Public Use
  Company Number: IL-ABBVIE-21K-082-3781534-00

PATIENT
  Age: 74 Year
  Sex: Female

DRUGS (3)
  1. CARDILOC [Concomitant]
     Active Substance: BISOPROLOL FUMARATE
     Indication: PRODUCT USED FOR UNKNOWN INDICATION
  2. NOVASAL [Concomitant]
     Indication: PRODUCT USED FOR UNKNOWN INDICATION
  3. RINVOQ [Suspect]
     Active Substance: UPADACITINIB
     Indication: RHEUMATOID ARTHRITIS
     Dosage: DURATION: A WEEK AND A HALF
     Route: 048

REACTIONS (4)
  - Diastolic dysfunction [Unknown]
  - Dyspnoea [Recovering/Resolving]
  - Pleural effusion [Unknown]
  - Pericardial effusion [Unknown]
